FAERS Safety Report 7249316-4 (Version None)
Quarter: 2011Q1

REPORT INFORMATION
  Report Type: 
  Country: None (occurrence: None)
  Receive Date: 20110128
  Receipt Date: 20101214
  Transmission Date: 20110831
  Serious: Yes (Other)
  Sender: FDA-Public Use
  Company Number: BR-BAYER-2010-006181

PATIENT
  Sex: Female
  Weight: 64 kg

DRUGS (2)
  1. MIRENA [Suspect]
     Indication: ENDOMETRIOSIS
     Dosage: 20 ?G, CONT
     Route: 015
     Dates: start: 20101120
  2. ANESTHETICS, LOCAL [Concomitant]
     Indication: INTRA-UTERINE CONTRACEPTIVE DEVICE INSERTION
     Dosage: UNK
     Dates: start: 20101120, end: 20101120

REACTIONS (8)
  - LYMPHADENOPATHY [None]
  - DERMATITIS ALLERGIC [None]
  - METRORRHAGIA [None]
  - AURICULAR SWELLING [None]
  - ABDOMINAL PAIN LOWER [None]
  - WEIGHT INCREASED [None]
  - FORMICATION [None]
  - EAR DISCOMFORT [None]
